FAERS Safety Report 4730662-0 (Version None)
Quarter: 2005Q3

REPORT INFORMATION
  Report Type: 
  Country: None (occurrence: None)
  Receive Date: 20050725
  Receipt Date: 20050301
  Transmission Date: 20060218
  Serious: No
  Sender: FDA-Public Use
  Company Number: USA050392125

PATIENT
  Age: 62 Year
  Sex: Male

DRUGS (3)
  1. STRATTERA [Suspect]
     Indication: ATTENTION DEFICIT/HYPERACTIVITY DISORDER
     Dosage: 25 MG DAY
     Dates: start: 20050224
  2. WELLBUTRIN [Concomitant]
  3. CRESTOR [Concomitant]

REACTIONS (1)
  - POLLAKIURIA [None]
